FAERS Safety Report 7523158-4 (Version None)
Quarter: 2011Q2

REPORT INFORMATION
  Report Type: 
  Country: None (occurrence: None)
  Receive Date: 20110525
  Receipt Date: 20110509
  Transmission Date: 20111010
  Serious: Yes (Hospitalization)
  Sender: FDA-Public Use
  Company Number: TCI2010A05108

PATIENT
  Age: 71 Year
  Sex: Male

DRUGS (3)
  1. ACETYL SALICYLIC ACID COMPOUND TAB [Concomitant]
  2. ACTOS [Suspect]
     Indication: TYPE 2 DIABETES MELLITUS
     Dosage: 15 MG (15 MG,1 D)PER ORAL
     Route: 048
     Dates: start: 20100205
  3. AMARYL (GLIMEAIRIDE) [Concomitant]

REACTIONS (1)
  - LYMPHOMA [None]
